FAERS Safety Report 9954459 (Version 1)
Quarter: 2014Q1

REPORT INFORMATION
  Report Type: Report from Study
  Country: US (occurrence: US)
  Receive Date: 20140304
  Receipt Date: 20140304
  Transmission Date: 20141002
  Serious: No
  Sender: FDA-Public Use
  Company Number: US-ABBVIE-13P-163-1083836-00

PATIENT
  Age: 41 Year
  Sex: Female
  Weight: 59.02 kg

DRUGS (13)
  1. HUMIRA [Suspect]
     Indication: CROHN^S DISEASE
     Dates: start: 20130311, end: 20130311
  2. HUMIRA [Suspect]
     Dates: start: 20130325, end: 20130325
  3. HUMIRA [Suspect]
     Dates: start: 20130408
  4. PHENERGAN [Concomitant]
     Indication: NAUSEA
  5. PHENERGAN [Concomitant]
     Indication: CROHN^S DISEASE
  6. REQUIP [Concomitant]
     Indication: RESTLESS LEGS SYNDROME
  7. OPANA [Concomitant]
     Indication: PAIN
  8. INDERAL [Concomitant]
     Indication: TREMOR
  9. GRALISE [Concomitant]
     Indication: PAIN
  10. DEPAKOTE [Concomitant]
     Indication: CONVULSION
  11. CLONIDINE [Concomitant]
     Indication: HYPERTENSION
  12. KEPPRA [Concomitant]
     Indication: CONVULSION
  13. DURAGESIC [Concomitant]
     Indication: PAIN

REACTIONS (6)
  - Weight decreased [Not Recovered/Not Resolved]
  - Decreased appetite [Not Recovered/Not Resolved]
  - Pyrexia [Recovered/Resolved]
  - Hot flush [Not Recovered/Not Resolved]
  - Chills [Not Recovered/Not Resolved]
  - Night sweats [Not Recovered/Not Resolved]
